FAERS Safety Report 8043964-X (Version None)
Quarter: 2012Q1

REPORT INFORMATION
  Report Type: 
  Country: None (occurrence: None)
  Receive Date: 20120113
  Receipt Date: 20120104
  Transmission Date: 20120608
  Serious: No
  Sender: FDA-Public Use
  Company Number: US-BIOGENIDEC-2012BI000584

PATIENT
  Age: 69 Year
  Sex: Female

DRUGS (3)
  1. ASPIRIN [Concomitant]
     Indication: PREMEDICATION
     Dates: start: 20110428
  2. ACETAMINOPHEN [Concomitant]
     Indication: PREMEDICATION
     Dates: start: 20110428
  3. AVONEX [Suspect]
     Indication: MULTIPLE SCLEROSIS
     Route: 030
     Dates: start: 20110428

REACTIONS (5)
  - INFLUENZA LIKE ILLNESS [None]
  - CHILLS [None]
  - VEIN DISORDER [None]
  - MEMORY IMPAIRMENT [None]
  - FEELING HOT [None]
